FAERS Safety Report 5732453-0 (Version None)
Quarter: 2008Q2

REPORT INFORMATION
  Report Type: 
  Country: None (occurrence: None)
  Receive Date: 20080508
  Receipt Date: 20080430
  Transmission Date: 20081010
  Serious: Yes (Hospitalization)
  Sender: FDA-Public Use
  Company Number: US-AMGEN-QUU274433

PATIENT
  Sex: Female

DRUGS (2)
  1. ENBREL [Suspect]
     Indication: RHEUMATOID ARTHRITIS
     Route: 058
     Dates: start: 20071219
  2. METHOTREXATE [Concomitant]
     Dates: start: 20070814

REACTIONS (4)
  - BURN INFECTION [None]
  - BURNS SECOND DEGREE [None]
  - BURNS THIRD DEGREE [None]
  - RHEUMATOID ARTHRITIS [None]
